FAERS Safety Report 9104340 (Version 2)
Quarter: 2014Q1

REPORT INFORMATION
  Report Type: Spontaneous
  Country: FI (occurrence: FI)
  Receive Date: 20130219
  Receipt Date: 20140221
  Transmission Date: 20141002
  Serious: Yes (Other)
  Sender: FDA-Public Use
  Company Number: FI-UCBSA-078328

PATIENT
  Age: 0 None
  Sex: Male
  Weight: 2.22 kg

DRUGS (20)
  1. VIMPAT [Suspect]
     Indication: STATUS EPILEPTICUS
     Route: 064
     Dates: start: 201207, end: 201207
  2. VIMPAT [Suspect]
     Indication: STATUS EPILEPTICUS
     Route: 064
     Dates: start: 20120730
  3. KEPPRA [Suspect]
     Indication: STATUS EPILEPTICUS
     Route: 064
     Dates: start: 20120729
  4. ALBETOL [Concomitant]
     Indication: BLOOD PRESSURE
     Route: 064
     Dates: start: 20120817, end: 20130206
  5. ALBETOL [Concomitant]
     Indication: BLOOD PRESSURE
     Route: 063
     Dates: start: 20130206, end: 201302
  6. FOLVITE [Concomitant]
     Indication: HIGH RISK PREGNANCY
     Route: 064
     Dates: start: 20120816, end: 20130206
  7. FOLVITE [Concomitant]
     Indication: HIGH RISK PREGNANCY
     Route: 063
     Dates: start: 20130206, end: 201302
  8. KLEXANE [Concomitant]
     Indication: INTRACRANIAL VENOUS SINUS THROMBOSIS
     Route: 064
     Dates: start: 20120729, end: 20130206
  9. KLEXANE [Concomitant]
     Indication: INTRACRANIAL VENOUS SINUS THROMBOSIS
     Route: 063
     Dates: start: 20130206, end: 201302
  10. PHENYTOINE [Concomitant]
     Route: 064
  11. STESOLID [Concomitant]
     Route: 064
  12. ATIVAN [Concomitant]
     Route: 064
  13. OBSIDAN [Concomitant]
     Indication: IRON DEFICIENCY ANAEMIA
     Route: 064
     Dates: start: 20120815, end: 20120903
  14. PRO-EPANUTIN [Concomitant]
     Route: 064
     Dates: start: 20120729, end: 20120814
  15. HYDANTIN [Concomitant]
     Route: 064
     Dates: start: 20120814, end: 20120910
  16. TAZOCIN [Concomitant]
     Indication: PNEUMONIA
     Route: 064
     Dates: end: 20120830
  17. HEPARIN [Concomitant]
     Indication: INTRACRANIAL VENOUS SINUS THROMBOSIS
     Route: 064
     Dates: start: 20120728, end: 20120729
  18. AMOXIN COMP [Concomitant]
     Indication: PNEUMONIA
     Route: 064
     Dates: start: 20120820, end: 20120828
  19. BIOPHILUS [Concomitant]
     Indication: PROPHYLAXIS
     Route: 064
     Dates: start: 20120820, end: 20120824
  20. SOMAC [Concomitant]
     Indication: PROPHYLAXIS AGAINST GASTROINTESTINAL ULCER
     Route: 064
     Dates: start: 20120729, end: 20120814

REACTIONS (3)
  - Premature baby [Recovered/Resolved]
  - Foetal exposure during pregnancy [Recovered/Resolved]
  - Exposure during breast feeding [Recovered/Resolved]
